FAERS Safety Report 18728783 (Version 2)
Quarter: 2021Q1

REPORT INFORMATION
  Report Type: Spontaneous
  Country: JP (occurrence: JP)
  Receive Date: 20210112
  Receipt Date: 20210118
  Transmission Date: 20210419
  Serious: Yes (Hospitalization)
  Sender: FDA-Public Use
  Company Number: JP-GLAXOSMITHKLINE-JP2020248104

PATIENT
  Age: 68 Year
  Sex: Male

DRUGS (6)
  1. MEPTIN AIR [Concomitant]
     Active Substance: PROCATEROL HYDROCHLORIDE
     Indication: ASTHMA
  2. SERETIDE [Suspect]
     Active Substance: FLUTICASONE PROPIONATE\SALMETEROL XINAFOATE
     Dosage: 500 ?G, BID
     Route: 055
  3. SERETIDE [Suspect]
     Active Substance: FLUTICASONE PROPIONATE\SALMETEROL XINAFOATE
     Indication: ASTHMA
     Dosage: 500 ?G, BID
     Route: 055
  4. SERETIDE [Suspect]
     Active Substance: FLUTICASONE PROPIONATE\SALMETEROL XINAFOATE
     Dosage: 500 ?G, QID
     Route: 055
  5. MEPTIN AIR [Concomitant]
     Active Substance: PROCATEROL HYDROCHLORIDE
     Indication: PRODUCTIVE COUGH
     Dosage: 1 INHALATION, QD, AT ONSET OF ASTHMA ATTACK
     Route: 055
  6. URSO [Concomitant]
     Active Substance: URSODIOL
     Indication: HEPATITIS C
     Dosage: UNK

REACTIONS (6)
  - Malaise [Recovered/Resolved]
  - Ligament sprain [Unknown]
  - Lumbar spinal stenosis [Recovered/Resolved with Sequelae]
  - Pyrexia [Recovered/Resolved]
  - Intentional overdose [Unknown]
  - Inappropriate schedule of product administration [Unknown]
